FAERS Safety Report 10170815 (Version 1)
Quarter: 2014Q2

REPORT INFORMATION
  Report Type: Spontaneous
  Country: US (occurrence: US)
  Receive Date: 20140514
  Receipt Date: 20140514
  Transmission Date: 20141212
  Serious: Yes (Hospitalization)
  Sender: FDA-Public Use
  Company Number: US-JNJFOC-20140505716

PATIENT
  Sex: Female

DRUGS (3)
  1. REMICADE [Suspect]
     Indication: CROHN^S DISEASE
     Route: 042
     Dates: start: 200910, end: 201209
  2. IMURAN [Concomitant]
     Route: 065
  3. ASACOL [Concomitant]
     Route: 065

REACTIONS (1)
  - Meningitis [Unknown]
